FAERS Safety Report 20903932 (Version 2)
Quarter: 2022Q2

REPORT INFORMATION
  Report Type: Spontaneous
  Country: US (occurrence: US)
  Receive Date: 20220602
  Receipt Date: 20220617
  Transmission Date: 20220720
  Serious: Yes (Other)
  Sender: FDA-Public Use
  Company Number: US-BEH-2022145870

PATIENT
  Age: 2 Year
  Sex: Male

DRUGS (3)
  1. HUMAN IMMUNOGLOBULIN G [Suspect]
     Active Substance: HUMAN IMMUNOGLOBULIN G
     Indication: Multisystem inflammatory syndrome in children
     Route: 042
  2. METHYLPREDNISOLONE [Suspect]
     Active Substance: METHYLPREDNISOLONE
     Indication: Multisystem inflammatory syndrome in children
     Route: 042
  3. ENOXAPARIN [Suspect]
     Active Substance: ENOXAPARIN
     Indication: Multisystem inflammatory syndrome in children
     Route: 065

REACTIONS (4)
  - Hypotension [Unknown]
  - Oxygen saturation decreased [Unknown]
  - No adverse event [Unknown]
  - Off label use [Unknown]
